FAERS Safety Report 8782005 (Version 2)
Quarter: 2012Q4

REPORT INFORMATION
  Report Type: 
  Country: US (occurrence: US)
  Receive Date: 20120913
  Receipt Date: 20121221
  Transmission Date: 20130627
  Serious: Yes (Hospitalization)
  Sender: FDA-Public Use
  Company Number: US-BAYER-2012-094569

PATIENT
  Age: 34 Year
  Sex: Female
  Weight: 61.22 kg

DRUGS (13)
  1. HYDROCODONE W/ACETAMINOPHEN [Concomitant]
  2. MORPHINE [Concomitant]
     Indication: PAIN
  3. YASMIN [Suspect]
     Indication: GENITAL BLEEDING
     Dosage: UNK
     Dates: start: 2008, end: 2012
  4. OCELLA [Suspect]
     Indication: GENITAL BLEEDING
     Dosage: UNK
     Dates: start: 2008, end: 2012
  5. PSYLLIUM [Concomitant]
     Dosage: 1 rounded tsp. in 8 oz. liquid PO BID
     Route: 048
     Dates: start: 201104
  6. NAPROXEN [Concomitant]
     Dosage: 500 gm. PO BID w food
     Route: 048
  7. IBUPROFEN [Concomitant]
     Dosage: 600 mg, TID w food
     Route: 048
  8. ZOFRAN [Concomitant]
     Indication: NAUSEA
     Dosage: 4 mg, Q4 hrs.
     Route: 048
  9. ZOFRAN [Concomitant]
     Indication: VOMITING
  10. PREDNISONE [Concomitant]
     Dosage: 20 mg, BID
     Route: 048
  11. CIPROFLOXACIN [Concomitant]
  12. FLAGYL [Concomitant]
     Dosage: UNK
     Route: 048
     Dates: start: 201104
  13. VANCOCIN [Concomitant]
     Dosage: UNK
     Route: 048
     Dates: start: 20110515

REACTIONS (9)
  - Cholecystectomy [None]
  - Cholecystitis chronic [None]
  - Clostridium difficile infection [None]
  - Injury [None]
  - Pain [None]
  - Emotional distress [None]
  - Anxiety [None]
  - Psychological trauma [None]
  - Off label use [None]
